FAERS Safety Report 24360174 (Version 1)
Quarter: 2024Q3

REPORT INFORMATION
  Report Type: Spontaneous
  Country: GB (occurrence: GB)
  Receive Date: 20240925
  Receipt Date: 20240925
  Transmission Date: 20241017
  Serious: Yes (Other)
  Sender: AUROBINDO
  Company Number: GB-MHRA-TPP21299607C835642YC1726157100833

PATIENT
  Age: 42 Year
  Sex: Female
  Weight: 60 kg

DRUGS (3)
  1. TERBINAFINE [Suspect]
     Active Substance: TERBINAFINE
     Indication: Onychomycosis
     Dosage: 250MG TABLETSTAKE ONE DAILY
     Route: 065
     Dates: start: 20240801
  2. HYDROCORTISONE [Concomitant]
     Active Substance: HYDROCORTISONE\HYDROCORTISONE ACETATE
     Indication: Product used for unknown indication
     Dosage: APPLY THINLY ONCE TO TWICE DAILY
     Route: 065
     Dates: start: 20240618, end: 20240716
  3. ITRACONAZOLE [Concomitant]
     Active Substance: ITRACONAZOLE
     Indication: Product used for unknown indication
     Dosage: TAKE ONE DAILY
     Route: 065

REACTIONS (1)
  - Gingivitis [Recovering/Resolving]

NARRATIVE: CASE EVENT DATE: 20240908
